FAERS Safety Report 5190118-0 (Version None)
Quarter: 2006Q4

REPORT INFORMATION
  Report Type: 
  Country: None (occurrence: None)
  Receive Date: 20061222
  Receipt Date: 20061215
  Transmission Date: 20070319
  Serious: Yes (Hospitalization, Other)
  Sender: FDA-Public Use
  Company Number: US-JNJFOC-20060905178

PATIENT
  Sex: Female
  Weight: 75.3 kg

DRUGS (19)
  1. REMICADE [Suspect]
     Indication: RHEUMATOID ARTHRITIS
     Route: 042
  2. PREDNISONE TAB [Concomitant]
     Dosage: 6 PLUS YEARS
  3. METHOTREXATE [Concomitant]
     Dosage: 6 PLUS YEARS
  4. NSAID [Concomitant]
     Dosage: 6 PLUS YEARS
  5. PILOCARPINE [Concomitant]
  6. FOSAMAX [Concomitant]
  7. LEVOXYL [Concomitant]
  8. FELDENE [Concomitant]
  9. DIOVAN [Concomitant]
  10. FOLIC ACID [Concomitant]
  11. LORAZEPAM [Concomitant]
  12. CYCLOBENZAPRINE HCL [Concomitant]
  13. PREVACID [Concomitant]
  14. PERCOCET [Concomitant]
  15. TYLENOL [Concomitant]
  16. VITAMIN A [Concomitant]
  17. CALCIUM [Concomitant]
  18. LYSINE [Concomitant]
  19. MULTI-VITAMIN [Concomitant]

REACTIONS (5)
  - ARTHRALGIA [None]
  - ARTHRITIS INFECTIVE [None]
  - CELLULITIS [None]
  - INTERVERTEBRAL DISC PROTRUSION [None]
  - OSTEOARTHRITIS [None]
